FAERS Safety Report 10286558 (Version 1)
Quarter: 2014Q3

REPORT INFORMATION
  Report Type: Spontaneous
  Country: FR (occurrence: FR)
  Receive Date: 20140709
  Receipt Date: 20140709
  Transmission Date: 20150326
  Serious: Yes (Death)
  Sender: FDA-Public Use
  Company Number: FR-SA-2014SA087683

PATIENT
  Age: 66 Year
  Sex: Male

DRUGS (1)
  1. JEVTANA [Suspect]
     Active Substance: CABAZITAXEL
     Indication: HORMONE-REFRACTORY PROSTATE CANCER
     Dosage: FREQUENCY- IN15 DAYS
     Route: 042
     Dates: start: 2014, end: 20140414

REACTIONS (11)
  - Asthenia [Fatal]
  - Staphylococcal sepsis [Fatal]
  - Febrile bone marrow aplasia [Fatal]
  - Pyrexia [Fatal]
  - Hyperhidrosis [Fatal]
  - Nausea [Fatal]
  - Diarrhoea [Fatal]
  - Leukopenia [Fatal]
  - Candida sepsis [Fatal]
  - Chills [Fatal]
  - Vomiting [Fatal]

NARRATIVE: CASE EVENT DATE: 20140424
